FAERS Safety Report 14530620 (Version 1)
Quarter: 2018Q1

REPORT INFORMATION
  Report Type: Spontaneous
  Country: US (occurrence: US)
  Receive Date: 20180214
  Receipt Date: 20180214
  Transmission Date: 20180509
  Serious: Yes (Hospitalization, Other)
  Sender: FDA-Public Use
  Company Number: US-NOVOPROD-585263

PATIENT
  Age: 70 Year
  Sex: Female

DRUGS (2)
  1. XANAX [Concomitant]
     Active Substance: ALPRAZOLAM
     Indication: ANXIETY
  2. NOVOLIN N [Suspect]
     Active Substance: INSULIN HUMAN
     Indication: TYPE 2 DIABETES MELLITUS
     Dosage: 35 U, UNK
     Route: 058
     Dates: start: 2016, end: 201802

REACTIONS (6)
  - Glycosylated haemoglobin increased [Unknown]
  - Bone neoplasm [Unknown]
  - Drug ineffective [Not Recovered/Not Resolved]
  - Joint injury [Unknown]
  - Benign neoplasm of skin [Recovered/Resolved]
  - Blood glucose increased [Not Recovered/Not Resolved]

NARRATIVE: CASE EVENT DATE: 2016
